FAERS Safety Report 6064199-6 (Version None)
Quarter: 2009Q1

REPORT INFORMATION
  Report Type: 
  Country: None (occurrence: None)
  Receive Date: 20090204
  Receipt Date: 20090127
  Transmission Date: 20090719
  Serious: Yes (Death)
  Sender: FDA-Public Use
  Company Number: JP-BRISTOL-MYERS SQUIBB COMPANY-14492003

PATIENT
  Age: 33 Year

DRUGS (2)
  1. ABILIFY [Suspect]
     Indication: SCHIZOPHRENIA
     Route: 048
  2. TRICYCLIC ANTIDEPRESSANTS [Concomitant]

REACTIONS (1)
  - SUDDEN DEATH [None]
